FAERS Safety Report 7435081-4 (Version None)
Quarter: 2011Q2

REPORT INFORMATION
  Report Type: 
  Country: None (occurrence: None)
  Receive Date: 20110425
  Receipt Date: 20110414
  Transmission Date: 20111010
  Serious: Yes (Disabling, Other)
  Sender: FDA-Public Use
  Company Number: PHHY2011GB33365

PATIENT
  Age: 83 Year
  Sex: Male
  Weight: 36.961 kg

DRUGS (6)
  1. CONTIFLO [Concomitant]
  2. TAMSULOSIN [Concomitant]
  3. SERETIDE [Concomitant]
     Route: 055
  4. SERETIDE [Concomitant]
     Route: 055
  5. STALEVO 100 [Suspect]
     Dosage: UNK
     Route: 048
     Dates: start: 20101117, end: 20110302
  6. DOMPERIDONE [Concomitant]
     Route: 048

REACTIONS (4)
  - MOBILITY DECREASED [None]
  - AGITATION [None]
  - ANXIETY [None]
  - CONFUSIONAL STATE [None]
